FAERS Safety Report 19071061 (Version 1)
Quarter: 2021Q1

REPORT INFORMATION
  Report Type: Spontaneous
  Country: SI (occurrence: SI)
  Receive Date: 20210330
  Receipt Date: 20210330
  Transmission Date: 20210420
  Serious: Yes (Hospitalization)
  Sender: FDA-Public Use
  Company Number: SI-JNJFOC-20210346271

PATIENT
  Age: 79 Year
  Sex: Male

DRUGS (8)
  1. TAMSULOZIN [Concomitant]
  2. RANOLAZINE. [Concomitant]
     Active Substance: RANOLAZINE
  3. BISOPROLOL [Concomitant]
     Active Substance: BISOPROLOL
  4. AMLODIPINE/VALSARTAN [Concomitant]
     Active Substance: AMLODIPINE\VALSARTAN
  5. FOLACIN [FOLIC ACID] [Concomitant]
     Active Substance: FOLIC ACID
  6. PANTOPRAZOLE [Concomitant]
     Active Substance: PANTOPRAZOLE
  7. ROSUVASTATIN. [Concomitant]
     Active Substance: ROSUVASTATIN
  8. RIVAROXABAN [Suspect]
     Active Substance: RIVAROXABAN
     Indication: PERIPHERAL ARTERIAL OCCLUSIVE DISEASE
     Dosage: UNK
     Route: 048
     Dates: start: 2020

REACTIONS (2)
  - Pulmonary embolism [Unknown]
  - Deep vein thrombosis [Unknown]

NARRATIVE: CASE EVENT DATE: 2020
